FAERS Safety Report 22754420 (Version 2)
Quarter: 2024Q1

REPORT INFORMATION
  Report Type: Other
  Country: CN (occurrence: None)
  Receive Date: 20230727
  Receipt Date: 20240109
  Transmission Date: 20240409
  Serious: Yes (Other)
  Sender: FDA-Public Use
  Company Number: CN-ROCHE-3392133

PATIENT

DRUGS (8)
  1. MYCOPHENOLATE MOFETIL [Suspect]
     Active Substance: MYCOPHENOLATE MOFETIL
     Indication: Glomerulonephritis membranous
     Route: 065
  2. MYCOPHENOLATE MOFETIL [Suspect]
     Active Substance: MYCOPHENOLATE MOFETIL
     Dosage: TAPERED TO 0.75 G/D FOR 12 MONTHS
     Route: 065
  3. MYCOPHENOLATE MOFETIL [Suspect]
     Active Substance: MYCOPHENOLATE MOFETIL
     Dosage: TAPERED TO 0.5 G/D FOR 12 MONTHS
     Route: 065
  4. PREDNISONE [Suspect]
     Active Substance: PREDNISONE
     Indication: Glomerulonephritis membranous
     Dosage: 1 MG/KG/D (MAXIMUM DOSE = 60 MG/D) FOR 2 WEEKS, THEN TAPERED BY 5 MG/WEEK
     Route: 048
  5. PREDNISONE [Suspect]
     Active Substance: PREDNISONE
     Dosage: AFTER THE DOSE HAD BEEN REDUCED TO 30 MG/D, IT WAS MAINTAINED THERE FOR 1 MONTH AND THEN TAPERED BY
     Route: 048
  6. PREDNISONE [Suspect]
     Active Substance: PREDNISONE
     Dosage: AFTER THE DOSE HAD BEEN REDUCED TO 20 MG/D, IT WAS MAINTAINED THERE FOR 2 MONTHS AND THEN TAPERED BY
     Route: 048
  7. PREDNISONE [Suspect]
     Active Substance: PREDNISONE
     Dosage: AFTER REDUCTION OF THE DOSE TO 5 MG/D, IT WAS MAINTAINED THERE FOR 4 MONTHS.
     Route: 048
  8. CYCLOSPORINE [Suspect]
     Active Substance: CYCLOSPORINE
     Indication: Glomerulonephritis membranous
     Route: 065

REACTIONS (12)
  - Pulmonary embolism [Unknown]
  - Acute kidney injury [Unknown]
  - Upper respiratory tract infection [Unknown]
  - Skin infection [Unknown]
  - Soft tissue infection [Unknown]
  - Pneumonia [Unknown]
  - Varicella zoster virus infection [Unknown]
  - Urinary tract infection [Unknown]
  - Venous thrombosis [Unknown]
  - Rash [Unknown]
  - Hepatic function abnormal [Unknown]
  - Intraocular pressure increased [Unknown]
